FAERS Safety Report 12214539 (Version 4)
Quarter: 2016Q3

REPORT INFORMATION
  Report Type: Spontaneous
  Country: US (occurrence: US)
  Receive Date: 20160328
  Receipt Date: 20160810
  Transmission Date: 20161109
  Serious: No
  Sender: FDA-Public Use
  Company Number: US-ACTELION PHARMACEUTICALS US, INC.-A-NJ2016-133370

PATIENT
  Age: 84 Year
  Sex: Female

DRUGS (4)
  1. UPTRAVI [Suspect]
     Active Substance: SELEXIPAG
     Indication: PULMONARY HYPERTENSION
     Dosage: 200 MCG, QD
     Route: 048
     Dates: start: 20160310
  2. ELIQUIS [Concomitant]
     Active Substance: APIXABAN
  3. RIOCIGUAT [Concomitant]
     Active Substance: RIOCIGUAT
  4. OPSUMIT [Suspect]
     Active Substance: MACITENTAN
     Indication: PULMONARY HYPERTENSION
     Dosage: 10 MG, QD
     Route: 048
     Dates: start: 20150916

REACTIONS (11)
  - Restless legs syndrome [Unknown]
  - Arthralgia [Unknown]
  - Headache [Unknown]
  - Seasonal allergy [Unknown]
  - Pain in extremity [Unknown]
  - Pain [Unknown]
  - Back pain [Unknown]
  - Dizziness [Unknown]
  - Malaise [Unknown]
  - Dyspnoea exertional [Unknown]
  - Oedema peripheral [Unknown]
